FAERS Safety Report 9289133 (Version 2)
Quarter: 2013Q3

REPORT INFORMATION
  Report Type: Spontaneous
  Country: US (occurrence: None)
  Receive Date: 20130509
  Receipt Date: 20130718
  Transmission Date: 20140515
  Serious: Yes (Hospitalization, Other)
  Sender: FDA-Public Use
  Company Number: ACO_35791_2013

PATIENT
  Age: 83 Year
  Sex: Female
  Weight: 69.8 kg

DRUGS (17)
  1. AMPYRA (DALFAMPRIDINE) TABLET, 10MG [Suspect]
     Indication: GAIT DISTURBANCE
     Route: 048
     Dates: start: 201212, end: 201212
  2. AMPYRA (DALFAMPRIDINE) TABLET, 10MG [Suspect]
     Indication: MULTIPLE SCLEROSIS
     Route: 048
     Dates: start: 201212, end: 201212
  3. COPAXONE (GLATIRAMER ACETATE) [Concomitant]
  4. EXELON (RIVASTIGMINE TARTRATE) [Concomitant]
  5. LOTREL (AMLODIPINE BESILATE, BENAZEPRIL HYDROCHLORIDE) [Concomitant]
  6. IMDUR (ISOSORBIDE MONONITRATE) [Concomitant]
  7. PLAVIX (CLOPIDOGREL BISULFATE) [Concomitant]
  8. SYNTHROID (LEVOTHYROXINE SODIUM) [Concomitant]
  9. CALCITRIOL (CALCITRIOL) [Concomitant]
  10. POTASSIUM CHLORIDE (POTASSIUM CHLORIDE) [Concomitant]
  11. ASPIRIN (ACETYLSALICYLIC ACID) [Concomitant]
  12. CENTRUM SILVER (ASCORBIC ACID, CALCIUM, MINERALS NOS, RETINOL, TOCOPHERYL ACETATE, VITAMIN B NOS, VITAMINS NOS, ZINC) [Concomitant]
  13. HYDROCHLOROTHIAZIDE WITH TRIAMTERENE (HYDROCHLOROTHIAZIDE, TRIAMTERENE) [Concomitant]
  14. DITROPAN (OXYBUTYNIN HYDROCHLORIDE) [Concomitant]
  15. RANEXA (RANOLAZINE) [Concomitant]
  16. METOPROLOL (METOPROLOL TARTRATE) [Concomitant]
  17. ALL OTHER THERAPEUTIC PRODUCTS [Concomitant]

REACTIONS (4)
  - Loss of consciousness [None]
  - Abasia [None]
  - Confusional state [None]
  - Macular degeneration [None]
